FAERS Safety Report 5605058-X (Version None)
Quarter: 2008Q1

REPORT INFORMATION
  Report Type: 
  Country: None (occurrence: None)
  Receive Date: 20080128
  Receipt Date: 20080118
  Transmission Date: 20080703
  Serious: Yes (Hospitalization, Other)
  Sender: FDA-Public Use
  Company Number: US-ABBOTT-07P-163-0415203-00

PATIENT
  Sex: Female
  Weight: 90.8 kg

DRUGS (5)
  1. HUMIRA [Suspect]
     Indication: CROHN'S DISEASE
     Route: 058
     Dates: start: 20070724, end: 20071101
  2. HUMIRA [Suspect]
     Route: 058
     Dates: start: 20070612, end: 20070812
  3. HUMIRA [Suspect]
     Dosage: DAY 15
     Route: 058
     Dates: start: 20070626, end: 20070626
  4. HUMIRA [Suspect]
     Dates: end: 20071101
  5. PREDNISONE TAB [Concomitant]
     Indication: CROHN'S DISEASE
     Route: 048

REACTIONS (12)
  - ASTHENIA [None]
  - CYST [None]
  - DEHYDRATION [None]
  - DIARRHOEA [None]
  - FEMALE GENITAL TRACT FISTULA [None]
  - HEART RATE DECREASED [None]
  - INFECTION [None]
  - NAUSEA [None]
  - PROCTALGIA [None]
  - PYREXIA [None]
  - RECTAL HAEMORRHAGE [None]
  - VOMITING [None]
